FAERS Safety Report 9165602 (Version 1)
Quarter: 2013Q1

REPORT INFORMATION
  Report Type: Spontaneous
  Country: US (occurrence: US)
  Receive Date: 20130315
  Receipt Date: 20130315
  Transmission Date: 20140127
  Serious: Yes (Death, Hospitalization)
  Sender: FDA-Public Use
  Company Number: US-BANPHARM-20130941

PATIENT
  Age: 49 Year
  Sex: Male

DRUGS (3)
  1. IBUPROFEN UNKNOWN PRODUCT [Suspect]
  2. DEPAKOTE [Suspect]
     Indication: BIPOLAR DISORDER
  3. LEVOTHYROXINE [Concomitant]
     Indication: HYPOTHYROIDISM

REACTIONS (12)
  - Coma [Fatal]
  - Hypotension [Fatal]
  - Metabolic acidosis [Fatal]
  - Hypothermia [Fatal]
  - Renal failure [Fatal]
  - Hyperammonaemia [Fatal]
  - Electrocardiogram QT prolonged [Fatal]
  - Vomiting [Fatal]
  - Lung infiltration [Fatal]
  - Pyrexia [Fatal]
  - Transaminases increased [Fatal]
  - Overdose [Fatal]
